FAERS Safety Report 10513871 (Version 1)
Quarter: 2014Q4

REPORT INFORMATION
  Report Type: Report from Study
  Country: US (occurrence: US)
  Receive Date: 20141013
  Receipt Date: 20141013
  Transmission Date: 20150528
  Serious: No
  Sender: FDA-Public Use
  Company Number: US-009507513-2010SP024428

PATIENT
  Age: 42 Year
  Sex: Female

DRUGS (3)
  1. REBETOL [Suspect]
     Active Substance: RIBAVIRIN
     Indication: PRODUCT USED FOR UNKNOWN INDICATION
     Dosage: EARLIEST TRIMESTER AT EXPOSURE = 0, GESTATION WEEK COURSE STOPPED = 11
     Route: 048
  2. PEGINTRON [Suspect]
     Active Substance: PEGINTERFERON ALFA-2B
     Indication: PRODUCT USED FOR UNKNOWN INDICATION
     Dosage: EARLIEST TRIMESTER AT EXPOSURE = 0, GESTATION WEEK COURSE STOPPED = 11
  3. REBETOL [Suspect]
     Active Substance: RIBAVIRIN
     Dosage: EARLIEST TRIMESTER AT EXPOSURE = 0, GESTATION WEEK COURSE STOPPED = 11

REACTIONS (2)
  - No adverse event [Unknown]
  - Exposure via father [Unknown]
